FAERS Safety Report 17464526 (Version 3)
Quarter: 2020Q3

REPORT INFORMATION
  Report Type: Spontaneous
  Country: CA (occurrence: CA)
  Receive Date: 20200226
  Receipt Date: 20200916
  Transmission Date: 20201102
  Serious: Yes (Other)
  Sender: FDA-Public Use
  Company Number: CA-PFIZER INC-2019456676

PATIENT
  Age: 66 Year
  Sex: Female

DRUGS (1)
  1. SULFASALAZINE. [Suspect]
     Active Substance: SULFASALAZINE
     Dosage: UNK
     Route: 065

REACTIONS (16)
  - Interstitial lung disease [Unknown]
  - Cardiac discomfort [Unknown]
  - Blister [Unknown]
  - Depressed mood [Unknown]
  - Dementia [Unknown]
  - Myocardial infarction [Unknown]
  - Illness [Unknown]
  - Brain stem syndrome [Unknown]
  - Dyspnoea [Unknown]
  - Productive cough [Unknown]
  - Dizziness [Unknown]
  - Pain [Unknown]
  - Spinal pain [Unknown]
  - Impaired quality of life [Not Recovered/Not Resolved]
  - Gait inability [Not Recovered/Not Resolved]
  - Mobility decreased [Not Recovered/Not Resolved]
